FAERS Safety Report 10313857 (Version 1)
Quarter: 2014Q3

REPORT INFORMATION
  Report Type: Spontaneous
  Country: US (occurrence: None)
  Receive Date: 20140716
  Receipt Date: 20140716
  Transmission Date: 20150326
  Serious: No
  Sender: FDA-Public Use
  Company Number: 2823142

PATIENT
  Age: 30 Month
  Sex: Male
  Weight: 13.61 kg

DRUGS (1)
  1. ALBA KIDS MINERAL SUNBLOCK SPF 30 [Suspect]
     Active Substance: TITANIUM DIOXIDE\ZINC OXIDE
     Indication: PROPHYLAXIS AGAINST SOLAR RADIATION
     Dosage: 060 OER 21 CFR 352
     Dates: start: 20140625

REACTIONS (4)
  - Rash [None]
  - Rhinorrhoea [None]
  - Rash generalised [None]
  - Application site rash [None]

NARRATIVE: CASE EVENT DATE: 20140625
